FAERS Safety Report 8944124 (Version 1)
Quarter: 2012Q4

REPORT INFORMATION
  Report Type: 
  Country: US (occurrence: US)
  Receive Date: 20121204
  Receipt Date: 20121204
  Transmission Date: 20130627
  Serious: Yes (Hospitalization)
  Sender: FDA-Public Use
  Company Number: US-AMGEN-USASP2012068838

PATIENT
  Age: 72 Year
  Sex: Female

DRUGS (3)
  1. ENBREL [Suspect]
     Indication: RHEUMATOID ARTHRITIS
     Dosage: 50 mg, qwk
     Dates: start: 20110915, end: 20121017
  2. METHOTREXATE [Concomitant]
     Dosage: UNK
  3. ANTIBIOTICS [Concomitant]
     Dosage: UNK

REACTIONS (3)
  - Respiratory tract infection [Recovered/Resolved]
  - Abdominal discomfort [Recovered/Resolved]
  - Bronchitis [Not Recovered/Not Resolved]
